FAERS Safety Report 23153285 (Version 1)
Quarter: 2023Q4

REPORT INFORMATION
  Report Type: Spontaneous
  Country: US (occurrence: US)
  Receive Date: 20231107
  Receipt Date: 20231107
  Transmission Date: 20240110
  Serious: No
  Sender: FDA-Public Use
  Company Number: US-009507513-2310USA010312

PATIENT
  Sex: Male

DRUGS (1)
  1. WELIREG [Suspect]
     Active Substance: BELZUTIFAN
     Dosage: 40 MILLIGRAM, FREQUENCY UNKNOWN
     Route: 048

REACTIONS (2)
  - Incorrect dose administered [Unknown]
  - Inability to afford medication [Unknown]
